FAERS Safety Report 10103661 (Version 1)
Quarter: 2014Q2

REPORT INFORMATION
  Report Type: Spontaneous
  Country: US (occurrence: US)
  Receive Date: 20140424
  Receipt Date: 20140424
  Transmission Date: 20141212
  Serious: No
  Sender: FDA-Public Use
  Company Number: US-PFIZER INC-2014112306

PATIENT
  Sex: 0

DRUGS (2)
  1. DETROL [Suspect]
     Dosage: UNK
  2. DETROL LA [Suspect]
     Dosage: UNK

REACTIONS (3)
  - Peripheral swelling [Unknown]
  - Dry mouth [Unknown]
  - Constipation [Unknown]
